FAERS Safety Report 8171733-9 (Version None)
Quarter: 2012Q1

REPORT INFORMATION
  Report Type: 
  Country: None (occurrence: None)
  Receive Date: 20120228
  Receipt Date: 20120224
  Transmission Date: 20120608
  Serious: Yes (Other)
  Sender: FDA-Public Use
  Company Number: CHPA2012US002242

PATIENT
  Age: 81 Year
  Sex: Female

DRUGS (1)
  1. MAALOX ADV MAXIMUM STRENGTH ANTACID/ANTIGAS [Suspect]
     Indication: CROHN'S DISEASE
     Dosage: 1-2 TSP PER NIGHT
     Route: 048
     Dates: start: 19920101

REACTIONS (5)
  - DIARRHOEA [None]
  - INCORRECT DRUG ADMINISTRATION DURATION [None]
  - UNDERDOSE [None]
  - OFF LABEL USE [None]
  - HIATUS HERNIA [None]
